FAERS Safety Report 13812810 (Version 3)
Quarter: 2017Q3

REPORT INFORMATION
  Report Type: Spontaneous
  Country: NO (occurrence: NO)
  Receive Date: 20170730
  Receipt Date: 20170901
  Transmission Date: 20171127
  Serious: Yes (Other)
  Sender: FDA-Public Use
  Company Number: NO-ROCHE-1971059

PATIENT
  Sex: Male

DRUGS (2)
  1. ROACTEMRA [Suspect]
     Active Substance: TOCILIZUMAB
     Indication: PRODUCT USED FOR UNKNOWN INDICATION
     Route: 042
  2. ROACTEMRA [Concomitant]
     Active Substance: TOCILIZUMAB
     Route: 058

REACTIONS (6)
  - Nausea [Unknown]
  - Dysgeusia [Unknown]
  - Visual impairment [Unknown]
  - Somnolence [Unknown]
  - Epistaxis [Unknown]
  - Vomiting [Unknown]
